FAERS Safety Report 4546178-0 (Version None)
Quarter: 2005Q1

REPORT INFORMATION
  Report Type: 
  Country: None (occurrence: None)
  Receive Date: 20050103
  Receipt Date: 20041222
  Transmission Date: 20050727
  Serious: Yes (Life-Threatening)
  Sender: FDA-Public Use
  Company Number: 2004118166

PATIENT
  Age: 21 Year
  Sex: Female
  Weight: 60 kg

DRUGS (3)
  1. CLINDAMYCIN PHOSPHATE [Suspect]
     Indication: INFECTION
     Dosage: 1.8 GRAM (DAILY), INTRAVENOUS
     Route: 042
     Dates: start: 20041204, end: 20041205
  2. PROPOFOL [Suspect]
     Indication: SEDATION
     Dosage: 7.2 GRAM (DAILY), INTRAVENOUS
     Route: 042
     Dates: start: 20041201, end: 20041205
  3. CEFOTAXIME SODIUM [Concomitant]

REACTIONS (2)
  - RHABDOMYOLYSIS [None]
  - VENTRICULAR EXTRASYSTOLES [None]
